FAERS Safety Report 12843043 (Version 1)
Quarter: 2016Q4

REPORT INFORMATION
  Report Type: Spontaneous
  Country: US (occurrence: US)
  Receive Date: 20161013
  Receipt Date: 20161013
  Transmission Date: 20170207
  Serious: No
  Sender: FDA-Public Use
  Company Number: US-ASTRAZENECA-2016SF06203

PATIENT
  Sex: Female

DRUGS (2)
  1. MOVANTIK [Suspect]
     Active Substance: NALOXEGOL OXALATE
     Indication: CONSTIPATION
     Route: 048
  2. XIFAXAN [Concomitant]
     Active Substance: RIFAXIMIN
     Indication: ABDOMINAL INFECTION
     Dosage: 550.0MG UNKNOWN
     Route: 065

REACTIONS (4)
  - Drug ineffective [Unknown]
  - Bowel movement irregularity [Unknown]
  - Nasopharyngitis [Unknown]
  - Abdominal infection [Unknown]
